FAERS Safety Report 18196434 (Version 1)
Quarter: 2020Q3

REPORT INFORMATION
  Report Type: Spontaneous
  Country: SE (occurrence: SE)
  Receive Date: 20200825
  Receipt Date: 20200825
  Transmission Date: 20201103
  Serious: Yes (Other)
  Sender: FDA-Public Use
  Company Number: SE-BAXTER-2020BAX017079

PATIENT
  Sex: Male

DRUGS (2)
  1. NATRIUMKLORID BAXTER 9 MG/ML INFUSIONSV?TSKA, LOSNING [Suspect]
     Active Substance: SODIUM CHLORIDE
     Indication: PRODUCT USED FOR UNKNOWN INDICATION
     Route: 065
  2. SOLU?CORTEF [Suspect]
     Active Substance: HYDROCORTISONE SODIUM SUCCINATE
     Indication: PROPHYLAXIS
     Route: 065

REACTIONS (1)
  - Anaphylactic shock [Unknown]
